FAERS Safety Report 8161091-8 (Version None)
Quarter: 2012Q1

REPORT INFORMATION
  Report Type: 
  Country: None (occurrence: None)
  Receive Date: 20120224
  Receipt Date: 20120221
  Transmission Date: 20120608
  Serious: No
  Sender: FDA-Public Use
  Company Number: US-PFIZER INC-2012046015

PATIENT
  Sex: Female
  Weight: 88 kg

DRUGS (18)
  1. IRON [Concomitant]
     Dosage: UNK
  2. ALPHA LIPOIC ACID [Concomitant]
     Dosage: UNK
  3. COENZYME Q10 [Concomitant]
     Dosage: UNK
  4. MAGNESIUM [Concomitant]
     Dosage: UNK
  5. GINKGO BILOBA [Concomitant]
     Dosage: UNK
  6. ACETYLCARNITINE [Concomitant]
     Dosage: UNK
  7. FLECTOR [Suspect]
     Indication: PAIN IN EXTREMITY
     Dosage: UNK, 2X/DAY
     Route: 061
     Dates: start: 20120220
  8. LEVOGLUTAMIDE [Concomitant]
     Dosage: UNK
  9. CALCIUM [Concomitant]
     Dosage: UNK
  10. VITAMIN B-12 [Concomitant]
     Dosage: UNK
  11. ST. JOHN'S WORT [Concomitant]
     Dosage: UNK
  12. FLAXSEED OIL [Concomitant]
     Dosage: UNK
  13. COCONUT OIL [Concomitant]
     Dosage: UNK
  14. PHOSPHATIDYL SERINE [Concomitant]
     Dosage: UNK
  15. ARGININE [Concomitant]
     Dosage: UNK
  16. VITAMIN D [Concomitant]
     Dosage: UNK
  17. ASCORBIC ACID [Concomitant]
     Dosage: UNK
  18. RED YEAST RICE [Concomitant]
     Dosage: UNK

REACTIONS (2)
  - PARAESTHESIA [None]
  - BURNING SENSATION [None]
